FAERS Safety Report 4973722-1 (Version None)
Quarter: 2006Q2

REPORT INFORMATION
  Report Type: 
  Country: None (occurrence: None)
  Receive Date: 20060414
  Receipt Date: 20050928
  Transmission Date: 20061013
  Serious: Yes (Death)
  Sender: FDA-Public Use
  Company Number: US-MERCK-0509USA04916

PATIENT
  Age: 48 Year
  Sex: Female

DRUGS (1)
  1. VIOXX [Suspect]
     Route: 048

REACTIONS (19)
  - ANOXIC ENCEPHALOPATHY [None]
  - ANXIETY [None]
  - ASTHMA [None]
  - BRONCHOSPASM [None]
  - CARDIAC ARREST [None]
  - CARDIAC FAILURE CONGESTIVE [None]
  - CARDIAC MURMUR [None]
  - HYPERCHOLESTEROLAEMIA [None]
  - HYPERLIPIDAEMIA [None]
  - HYPERTENSION [None]
  - MYOCARDIAL INFARCTION [None]
  - ORTHOPNOEA [None]
  - PALPITATIONS [None]
  - PHARYNGITIS [None]
  - PNEUMONITIS [None]
  - POSTNASAL DRIP [None]
  - SEASONAL ALLERGY [None]
  - SINUSITIS [None]
  - TINEA CRURIS [None]
